FAERS Safety Report 7678511-5 (Version None)
Quarter: 2011Q3

REPORT INFORMATION
  Report Type: 
  Country: None (occurrence: None)
  Receive Date: 20110811
  Receipt Date: 20110802
  Transmission Date: 20111222
  Serious: Yes (Death, Other)
  Sender: FDA-Public Use
  Company Number: IN-BAXTER-2011BH025244

PATIENT
  Age: 15 Year
  Sex: Male

DRUGS (5)
  1. IFOSFAMIDE [Suspect]
     Indication: EWING'S SARCOMA
     Route: 065
  2. VINCRISTINE SULFATE [Suspect]
     Indication: EWING'S SARCOMA
     Route: 065
  3. ADRIAMYCIN PFS [Suspect]
     Indication: EWING'S SARCOMA
     Route: 065
  4. CYCLOPHOSPHAMIDE [Suspect]
     Indication: EWING'S SARCOMA
     Route: 065
  5. ETOPOSIDE [Suspect]
     Indication: EWING'S SARCOMA
     Route: 065

REACTIONS (2)
  - NEUTROPENIA [None]
  - SEPSIS [None]
